FAERS Safety Report 9805023 (Version 1)
Quarter: 2014Q1

REPORT INFORMATION
  Report Type: Report from Study
  Country: CA (occurrence: CA)
  Receive Date: 20140109
  Receipt Date: 20140109
  Transmission Date: 20141002
  Serious: Yes (Death)
  Sender: FDA-Public Use
  Company Number: CA-ROCHE-1330898

PATIENT
  Age: 60 Year
  Sex: Female
  Weight: 60.8 kg

DRUGS (7)
  1. AVASTIN [Suspect]
     Indication: GLIOBLASTOMA
     Route: 042
     Dates: start: 20131120, end: 20131230
  2. DEXAMETHASONE [Concomitant]
     Route: 048
  3. RANITIDINE [Concomitant]
  4. LORAZEPAM [Concomitant]
     Route: 065
  5. MELATONIN [Concomitant]
     Route: 065
  6. TYLENOL [Concomitant]
     Indication: HEADACHE
     Route: 065
  7. VITAMIN C [Concomitant]

REACTIONS (1)
  - Death [Fatal]
